FAERS Safety Report 24901663 (Version 2)
Quarter: 2025Q1

REPORT INFORMATION
  Report Type: Spontaneous
  Country: US (occurrence: US)
  Receive Date: 20250129
  Receipt Date: 20250201
  Transmission Date: 20250409
  Serious: No
  Sender: SANOFI AVENTIS
  Company Number: US-SA-2025SA027472

PATIENT
  Age: 59 Year
  Sex: Female
  Weight: 68.18 kg

DRUGS (17)
  1. DUPIXENT [Suspect]
     Active Substance: DUPILUMAB
     Indication: Chronic sinusitis
     Dosage: 300 MG, QOW
     Route: 058
     Dates: start: 20241211
  2. FORTEO [Concomitant]
     Active Substance: TERIPARATIDE
  3. LISINOPRIL [Concomitant]
     Active Substance: LISINOPRIL
  4. FLONASE ALLERGY RELIEF [Concomitant]
     Active Substance: FLUTICASONE PROPIONATE
  5. CYCLOBENZAPRINE HYDROCHLORIDE [Concomitant]
     Active Substance: CYCLOBENZAPRINE HYDROCHLORIDE
  6. SUMATRIPTAN SUCCINATE [Concomitant]
     Active Substance: SUMATRIPTAN SUCCINATE
  7. DICYCLOMINE HYDROCHLORIDE [Concomitant]
     Active Substance: DICYCLOMINE HYDROCHLORIDE
  8. PROLIA [Concomitant]
     Active Substance: DENOSUMAB
  9. OMEPRAZOLE [Concomitant]
     Active Substance: OMEPRAZOLE
  10. ALBUTEROL SULFATE [Concomitant]
     Active Substance: ALBUTEROL SULFATE
  11. BACLOFEN [Concomitant]
     Active Substance: BACLOFEN
  12. OXYCODONE AND ACETAMINOPHEN [Concomitant]
     Active Substance: ACETAMINOPHEN\OXYCODONE HYDROCHLORIDE
  13. FLUTICASONE PROPIONATE [Concomitant]
     Active Substance: FLUTICASONE PROPIONATE
  14. LIDOCAINE [Concomitant]
     Active Substance: LIDOCAINE
  15. FAMOTIDINE [Concomitant]
     Active Substance: FAMOTIDINE
  16. CETIRIZINE HCL [Concomitant]
     Active Substance: CETIRIZINE HYDROCHLORIDE
  17. PREGABALIN [Concomitant]
     Active Substance: PREGABALIN

REACTIONS (6)
  - Eye pain [Recovering/Resolving]
  - Eye discharge [Recovering/Resolving]
  - Eye swelling [Recovering/Resolving]
  - Rash [Recovering/Resolving]
  - Hypersensitivity [Unknown]
  - Product use in unapproved indication [Unknown]
